FAERS Safety Report 5373510-0 (Version None)
Quarter: 2007Q2

REPORT INFORMATION
  Report Type: 
  Country: None (occurrence: None)
  Receive Date: 20070628
  Receipt Date: 20070625
  Transmission Date: 20071010
  Serious: Yes (Disabling)
  Sender: FDA-Public Use
  Company Number: A0659952A

PATIENT
  Age: 55 Year
  Sex: Male

DRUGS (3)
  1. IMITREX [Suspect]
     Indication: MIGRAINE
     Route: 065
     Dates: start: 19970101
  2. IBUPROFEN [Concomitant]
  3. TESTOSTERONE [Concomitant]

REACTIONS (1)
  - OPTIC NEUROPATHY [None]
